FAERS Safety Report 5990818-6 (Version None)
Quarter: 2008Q4

REPORT INFORMATION
  Report Type: 
  Country: None (occurrence: None)
  Receive Date: 20081211
  Receipt Date: 20081204
  Transmission Date: 20090506
  Serious: Yes (Hospitalization)
  Sender: FDA-Public Use
  Company Number: US-BIOGENIDEC-2008BI032792

PATIENT
  Age: 56 Year
  Sex: Female
  Weight: 84 kg

DRUGS (2)
  1. AVONEX [Suspect]
     Indication: MULTIPLE SCLEROSIS
     Route: 030
     Dates: start: 20030101, end: 20080101
  2. AVONEX [Suspect]
     Route: 030
     Dates: start: 20080501

REACTIONS (4)
  - BLOOD CHOLESTEROL INCREASED [None]
  - INSOMNIA [None]
  - INTRACRANIAL ANEURYSM [None]
  - SKIN MASS [None]
